FAERS Safety Report 9207921 (Version 1)
Quarter: 2013Q2

REPORT INFORMATION
  Report Type: Spontaneous
  Country: FR (occurrence: FR)
  Receive Date: 20130403
  Receipt Date: 20130403
  Transmission Date: 20140414
  Serious: Yes (Hospitalization)
  Sender: FDA-Public Use
  Company Number: FR-B.I. PHARMACEUTICALS,INC./RIDGEFIELD-2013-FF-00448FF

PATIENT
  Age: 92 Year
  Sex: Male

DRUGS (2)
  1. PRADAXA [Suspect]
     Indication: PULMONARY EMBOLISM
     Dosage: 220 MG
     Route: 048
     Dates: start: 201209, end: 20130111
  2. PRADAXA [Suspect]
     Indication: ATRIAL FIBRILLATION

REACTIONS (3)
  - Thrombocytopenia [Recovered/Resolved]
  - Gingival bleeding [Unknown]
  - Idiopathic thrombocytopenic purpura [Recovered/Resolved]
